FAERS Safety Report 6592966-9 (Version None)
Quarter: 2010Q1

REPORT INFORMATION
  Report Type: 
  Country: None (occurrence: None)
  Receive Date: 20100212
  Receipt Date: 20100204
  Transmission Date: 20100710
  Serious: Yes (Death)
  Sender: FDA-Public Use
  Company Number: 2010SP007232

PATIENT
  Age: 26 Year
  Sex: Female

DRUGS (5)
  1. MIRTAZAPINE [Suspect]
     Indication: DEPRESSION
     Dosage: 45 MG; QD; PO
     Route: 048
     Dates: start: 20091105, end: 20091227
  2. FLUVOXAMINE MALEATE [Suspect]
     Indication: DRUG USE FOR UNKNOWN INDICATION
     Dosage: 50 MG; QD; PO
     Route: 048
     Dates: start: 20090714, end: 20091227
  3. DEPAS (ETIZOLAM) [Suspect]
     Indication: DRUG USE FOR UNKNOWN INDICATION
     Dosage: PRN; PO
     Route: 048
     Dates: end: 20091227
  4. PZC (PERPHENAZINE MALEATE) [Suspect]
     Indication: DRUG USE FOR UNKNOWN INDICATION
     Dosage: 8 MG; QD; PO
     Route: 048
     Dates: start: 20091126, end: 20091227
  5. ATENOLOL` [Concomitant]

REACTIONS (5)
  - ACCIDENT [None]
  - COMPLETED SUICIDE [None]
  - IRRITABILITY [None]
  - PLEURAL HAEMORRHAGE [None]
  - TREATMENT NONCOMPLIANCE [None]
